FAERS Safety Report 7533569-9 (Version None)
Quarter: 2011Q2

REPORT INFORMATION
  Report Type: 
  Country: None (occurrence: None)
  Receive Date: 20110608
  Receipt Date: 20060113
  Transmission Date: 20111010
  Serious: Yes (Death)
  Sender: FDA-Public Use
  Company Number: PHHO2006NZ00853

PATIENT
  Sex: Male

DRUGS (4)
  1. CLOZAPINE [Suspect]
     Indication: SCHIZOPHRENIA
     Dosage: 50 MG, QD
     Route: 048
     Dates: start: 20050714, end: 20060102
  2. HALOPERIDOL [Concomitant]
  3. PAROXETINE HCL [Concomitant]
  4. RIVASTIGMINE [Concomitant]

REACTIONS (1)
  - PNEUMONIA [None]
